FAERS Safety Report 20616134 (Version 1)
Quarter: 2022Q1

REPORT INFORMATION
  Report Type: Spontaneous
  Country: US (occurrence: None)
  Receive Date: 20220318
  Receipt Date: 20220318
  Transmission Date: 20220424
  Serious: Yes (Death)
  Sender: FDA-Public Use
  Company Number: None

PATIENT
  Age: 92 Year
  Sex: Male

DRUGS (1)
  1. RAYALDEE [Suspect]
     Active Substance: CALCIFEDIOL
     Indication: Nephropathy
     Dosage: OTHER QUANTITY : 1 CAP;?FREQUENCY : ONCE;?
     Route: 048
     Dates: start: 20210303, end: 202203

REACTIONS (1)
  - Death [None]
